FAERS Safety Report 11320790 (Version 1)
Quarter: 2015Q3

REPORT INFORMATION
  Report Type: Spontaneous
  Country: US (occurrence: US)
  Receive Date: 20150729
  Receipt Date: 20150729
  Transmission Date: 20151125
  Serious: No
  Sender: FDA-Public Use
  Company Number: US-009507513-1507USA012570

PATIENT
  Age: 74 Year
  Sex: Female

DRUGS (6)
  1. BELSOMRA [Suspect]
     Active Substance: SUVOREXANT
     Indication: INSOMNIA
     Dosage: 10 MG, QD
     Route: 048
  2. CORGARD [Concomitant]
     Active Substance: NADOLOL
  3. XANAX [Concomitant]
     Active Substance: ALPRAZOLAM
  4. PROCARDIA [Concomitant]
     Active Substance: NIFEDIPINE
  5. TYLENOL [Concomitant]
     Active Substance: ACETAMINOPHEN
  6. ONDANSETRON [Concomitant]
     Active Substance: ONDANSETRON

REACTIONS (1)
  - Formication [Unknown]
